FAERS Safety Report 6172091-1 (Version None)
Quarter: 2009Q2

REPORT INFORMATION
  Report Type: 
  Country: None (occurrence: None)
  Receive Date: 20090429
  Receipt Date: 20090417
  Transmission Date: 20091009
  Serious: No
  Sender: FDA-Public Use
  Company Number: US-B.I. PHARMACEUTICALS,INC./RIDGEFIELD-2009-BP-05257BP

PATIENT

DRUGS (1)
  1. SPIRIVA [Suspect]

REACTIONS (3)
  - INSOMNIA [None]
  - PALPITATIONS [None]
  - TACHYCARDIA [None]
